FAERS Safety Report 9331988 (Version 5)
Quarter: 2014Q1

REPORT INFORMATION
  Report Type: Spontaneous
  Country: DE (occurrence: None)
  Receive Date: 20130603
  Receipt Date: 20140320
  Transmission Date: 20141002
  Serious: Yes (Other)
  Sender: FDA-Public Use
  Company Number: 1305-703

PATIENT
  Age: 81 Year
  Sex: Male
  Weight: 54 kg

DRUGS (1)
  1. EYLEA [Suspect]
     Indication: AGE-RELATED MACULAR DEGENERATION
     Route: 031
     Dates: start: 20130308, end: 20130308

REACTIONS (3)
  - Retinal haemorrhage [None]
  - Detachment of retinal pigment epithelium [None]
  - Visual acuity reduced [None]
